FAERS Safety Report 9553619 (Version 1)
Quarter: 2013Q3

REPORT INFORMATION
  Report Type: Spontaneous
  Country: US (occurrence: None)
  Receive Date: 20130816
  Receipt Date: 20130816
  Transmission Date: 20140515
  Serious: No
  Sender: FDA-Public Use
  Company Number: US-012347

PATIENT
  Age: 48 Year
  Sex: Male
  Weight: 83.92 kg

DRUGS (2)
  1. PICO-SALAX [Suspect]
     Indication: BOWEL PREPARATION
     Dates: start: 20130715, end: 20130716
  2. CLARITIN /00413701/ [Concomitant]

REACTIONS (2)
  - Product physical issue [None]
  - No adverse event [None]
